FAERS Safety Report 5849038-8 (Version None)
Quarter: 2008Q3

REPORT INFORMATION
  Report Type: 
  Country: None (occurrence: None)
  Receive Date: 20080819
  Receipt Date: 20080811
  Transmission Date: 20090109
  Serious: Yes (Disabling)
  Sender: FDA-Public Use
  Company Number: AU-WYE-G01983808

PATIENT
  Age: 18 Year
  Sex: Male

DRUGS (2)
  1. EFFEXOR XR [Suspect]
     Indication: DEPRESSION
     Dosage: UNKNOWN
     Dates: start: 20071110
  2. EFFEXOR XR [Suspect]
     Dosage: ^ONLY BEEN HAVING A FEW GRAINS OF A CAPSULE OVER THESE MONTHS^

REACTIONS (8)
  - AMNESIA [None]
  - ANGER [None]
  - ANXIETY [None]
  - DRUG WITHDRAWAL SYNDROME [None]
  - FEELING ABNORMAL [None]
  - LEARNING DISORDER [None]
  - MENTAL IMPAIRMENT [None]
  - UNEVALUABLE EVENT [None]
